FAERS Safety Report 16513759 (Version 2)
Quarter: 2019Q3

REPORT INFORMATION
  Report Type: Spontaneous
  Country: GB (occurrence: GB)
  Receive Date: 20190702
  Receipt Date: 20190802
  Transmission Date: 20191004
  Serious: Yes (Life-Threatening, Hospitalization)
  Sender: FDA-Public Use
  Company Number: GB-PFIZER INC-2019275311

PATIENT
  Age: 65 Year
  Sex: Female

DRUGS (3)
  1. DOCETAXEL. [Suspect]
     Active Substance: DOCETAXEL
     Indication: HER-2 POSITIVE BREAST CANCER
     Dosage: 132 MG, EVERY 3 WEEKS
     Route: 042
     Dates: start: 20181229, end: 20190301
  2. PERJETA [Suspect]
     Active Substance: PERTUZUMAB
     Indication: HER-2 POSITIVE BREAST CANCER
     Dosage: 840 MG, EVERY 3 WEEKS
     Route: 042
     Dates: start: 20181228, end: 20190301
  3. HERCEPTIN [Suspect]
     Active Substance: TRASTUZUMAB
     Indication: HER-2 POSITIVE BREAST CANCER
     Dosage: 504 MG, EVERY 3 WEEKS
     Route: 041
     Dates: end: 20190510

REACTIONS (5)
  - Diarrhoea [Recovered/Resolved with Sequelae]
  - Gastrointestinal bacterial overgrowth [Unknown]
  - Coeliac disease [Unknown]
  - Electrolyte imbalance [Unknown]
  - Acidosis [Unknown]

NARRATIVE: CASE EVENT DATE: 201901
